FAERS Safety Report 9020284 (Version 1)
Quarter: 2013Q1

REPORT INFORMATION
  Report Type: Spontaneous
  Country: MY (occurrence: US)
  Receive Date: 20130119
  Receipt Date: 20130119
  Transmission Date: 20140127
  Serious: No
  Sender: FDA-Public Use
  Company Number: US-ALLERGAN-1209442US

PATIENT
  Age: 40 None
  Sex: Female

DRUGS (2)
  1. BOTOX? [Suspect]
     Indication: SKIN WRINKLING
     Dosage: 12 UNITS, SINGLE
     Route: 023
     Dates: start: 20120702, end: 20120702
  2. BOTOX? [Suspect]
     Dosage: 40 UNITS, SINGLE
     Route: 023
     Dates: start: 20120427, end: 20120427

REACTIONS (2)
  - Cheilitis [Recovering/Resolving]
  - Chapped lips [Recovering/Resolving]
